FAERS Safety Report 14414956 (Version 1)
Quarter: 2018Q1

REPORT INFORMATION
  Report Type: Spontaneous
  Country: US (occurrence: US)
  Receive Date: 20180112
  Receipt Date: 20180112
  Transmission Date: 20180509
  Serious: Yes (Death, Hospitalization)
  Sender: FDA-Public Use
  Company Number: None

PATIENT
  Age: 52 Year
  Sex: Male
  Weight: 66.6 kg

DRUGS (2)
  1. 5-FLUOROURACIL (5-FU) [Suspect]
     Active Substance: FLUOROURACIL
     Dates: end: 20171219
  2. CISPLATIN. [Concomitant]
     Active Substance: CISPLATIN
     Dates: end: 20171219

REACTIONS (14)
  - Febrile neutropenia [None]
  - Thrombocytopenia [None]
  - Diarrhoea [None]
  - Dehydration [None]
  - Cardiac arrest [None]
  - Fall [None]
  - Tachycardia [None]
  - Productive cough [None]
  - Hypotension [None]
  - Blood creatinine abnormal [None]
  - Rhinorrhoea [None]
  - Asthenia [None]
  - Septic shock [None]
  - Pneumonia [None]

NARRATIVE: CASE EVENT DATE: 20171231
